FAERS Safety Report 10150677 (Version 1)
Quarter: 2014Q2

REPORT INFORMATION
  Report Type: Spontaneous
  Country: US (occurrence: US)
  Receive Date: 20140502
  Receipt Date: 20140502
  Transmission Date: 20141212
  Serious: No
  Sender: FDA-Public Use
  Company Number: US-009507513-1405USA000824

PATIENT
  Sex: Female

DRUGS (1)
  1. SYLATRON [Suspect]
     Dosage: ONE INJECTION WEEKLY
     Route: 058
     Dates: start: 201310

REACTIONS (2)
  - Injection site pain [Recovered/Resolved]
  - Needle issue [Unknown]
